FAERS Safety Report 20646203 (Version 1)
Quarter: 2022Q1

REPORT INFORMATION
  Report Type: Spontaneous
  Country: CA (occurrence: CA)
  Receive Date: 20220329
  Receipt Date: 20220329
  Transmission Date: 20220423
  Serious: Yes (Other)
  Sender: FDA-Public Use
  Company Number: CA-JNJFOC-20220121199

PATIENT
  Age: 69 Year
  Sex: Male
  Weight: 80 kg

DRUGS (2)
  1. REMICADE [Suspect]
     Active Substance: INFLIXIMAB
     Indication: Crohn^s disease
     Route: 042
  2. PREDNISONE [Concomitant]
     Active Substance: PREDNISONE
     Indication: Product used for unknown indication
     Route: 065

REACTIONS (10)
  - Weight increased [Unknown]
  - Inappropriate schedule of product administration [Unknown]
  - Insomnia [Recovered/Resolved]
  - Somnolence [Recovered/Resolved]
  - Condition aggravated [Recovered/Resolved]
  - Fatigue [Recovered/Resolved]
  - Abdominal pain [Recovered/Resolved]
  - Intentional product use issue [Unknown]
  - Off label use [Unknown]
  - Therapeutic product effect incomplete [Unknown]
